FAERS Safety Report 21994378 (Version 1)
Quarter: 2023Q1

REPORT INFORMATION
  Report Type: Spontaneous
  Country: US (occurrence: US)
  Receive Date: 20230215
  Receipt Date: 20230215
  Transmission Date: 20230418
  Serious: Yes (Other)
  Sender: FDA-Public Use
  Company Number: US-MYLANLABS-2023M1016299

PATIENT
  Age: 6 Month
  Sex: Male

DRUGS (8)
  1. BUSULFAN [Suspect]
     Active Substance: BUSULFAN
     Indication: Bone marrow conditioning regimen
     Dosage: UNK
     Route: 065
  2. TACROLIMUS [Suspect]
     Active Substance: TACROLIMUS
     Indication: Prophylaxis against graft versus host disease
     Dosage: 0.6 MILLIGRAM, BID
     Route: 065
  3. METHOTREXATE [Suspect]
     Active Substance: METHOTREXATE
     Indication: Prophylaxis against graft versus host disease
     Dosage: UNK, 1.75 MG ON THE DAY 1, DAY 3, DAY 6 AND DAY 11 OF HSCT
     Route: 065
  4. CYCLOPHOSPHAMIDE [Suspect]
     Active Substance: CYCLOPHOSPHAMIDE
     Indication: Bone marrow conditioning regimen
     Dosage: UNK
     Route: 065
  5. ALEMTUZUMAB [Suspect]
     Active Substance: ALEMTUZUMAB
     Indication: Prophylaxis against graft versus host disease
     Dosage: 3 MILLIGRAM, SINGLE DOSE OF ALEMTUZUMAB 3MG
     Route: 065
  6. COTRIMOXAZOLE [Concomitant]
     Active Substance: SULFAMETHOXAZOLE\TRIMETHOPRIM
     Indication: Antibiotic prophylaxis
     Dosage: UNK
     Route: 065
  7. AMOXICILLIN [Concomitant]
     Active Substance: AMOXICILLIN
     Indication: Antibiotic prophylaxis
     Dosage: UNK
     Route: 065
  8. Immunoglobulin [Concomitant]
     Indication: Antibiotic prophylaxis
     Dosage: UNK
     Route: 042

REACTIONS (2)
  - Cytomegalovirus infection [Unknown]
  - Lymphopenia [Recovering/Resolving]
